FAERS Safety Report 14414348 (Version 2)
Quarter: 2018Q2

REPORT INFORMATION
  Report Type: Spontaneous
  Country: ES (occurrence: ES)
  Receive Date: 20180120
  Receipt Date: 20180406
  Transmission Date: 20180711
  Serious: Yes (Other)
  Sender: FDA-Public Use
  Company Number: ES-SUN PHARMACEUTICAL INDUSTRIES LTD-2018R1-160214

PATIENT
  Age: 80 Year
  Sex: Male

DRUGS (7)
  1. IMATINIB [Suspect]
     Active Substance: IMATINIB
     Indication: CHRONIC MYELOID LEUKAEMIA
     Dosage: UNK
     Route: 065
  2. IMATINIB [Interacting]
     Active Substance: IMATINIB
     Dosage: UNK
     Route: 065
  3. TRIPTORELIN [Concomitant]
     Active Substance: TRIPTORELIN
     Indication: PRODUCT USED FOR UNKNOWN INDICATION
     Dosage: UNK ()
     Route: 065
  4. IMATINIB [Interacting]
     Active Substance: IMATINIB
     Dosage: UNK
     Route: 065
  5. IMATINIB [Interacting]
     Active Substance: IMATINIB
     Dosage: UNK
     Route: 065
  6. PHENYTOIN. [Interacting]
     Active Substance: PHENYTOIN
     Indication: SEIZURE
     Dosage: UNK
     Route: 065
  7. IMATINIB [Interacting]
     Active Substance: IMATINIB
     Dosage: UNK
     Route: 065

REACTIONS (3)
  - Cytopenia [Unknown]
  - Drug level decreased [Unknown]
  - Drug interaction [Unknown]
